FAERS Safety Report 25192234 (Version 1)
Quarter: 2025Q2

REPORT INFORMATION
  Report Type: Spontaneous
  Country: US (occurrence: None)
  Receive Date: 20250414
  Receipt Date: 20250414
  Transmission Date: 20250716
  Serious: Yes (Hospitalization)
  Sender: FDA-CTU
  Company Number: None

PATIENT
  Age: 75 Year
  Sex: Female
  Weight: 90 kg

DRUGS (2)
  1. LECANEMAB [Suspect]
     Active Substance: LECANEMAB
     Indication: Dementia Alzheimer^s type
     Dosage: OTHER FREQUENCY : EVERY 14 DAYS;?
     Route: 042
     Dates: start: 20250113, end: 20250224
  2. LECANEMAB [Concomitant]
     Active Substance: LECANEMAB
     Dates: start: 20250113, end: 20250224

REACTIONS (10)
  - Magnetic resonance imaging abnormal [None]
  - Ataxia [None]
  - Confusional state [None]
  - Visual impairment [None]
  - Clumsiness [None]
  - Fall [None]
  - Head injury [None]
  - Concussion [None]
  - Balance disorder [None]
  - Gait disturbance [None]

NARRATIVE: CASE EVENT DATE: 20250314
